FAERS Safety Report 9187435 (Version 3)
Quarter: 2013Q2

REPORT INFORMATION
  Report Type: Spontaneous
  Country: US (occurrence: US)
  Receive Date: 20130325
  Receipt Date: 20130409
  Transmission Date: 20140414
  Serious: Yes (Life-Threatening, Hospitalization)
  Sender: FDA-Public Use
  Company Number: US-JNJFOC-20130312164

PATIENT
  Age: 60 Year
  Sex: Female
  Weight: 63.5 kg

DRUGS (10)
  1. XARELTO [Suspect]
     Indication: CEREBROVASCULAR ACCIDENT PROPHYLAXIS
     Dosage: EVERY EVENING
     Route: 048
     Dates: end: 20121102
  2. XARELTO [Suspect]
     Indication: CEREBROVASCULAR ACCIDENT PROPHYLAXIS
     Dosage: EVERY EVENING
     Route: 048
     Dates: start: 20121108
  3. XARELTO [Suspect]
     Indication: ATRIAL FIBRILLATION
     Dosage: EVERY EVENING
     Route: 048
     Dates: end: 20121102
  4. XARELTO [Suspect]
     Indication: ATRIAL FIBRILLATION
     Dosage: EVERY EVENING
     Route: 048
     Dates: start: 20121108
  5. NOVOSEVEN [Suspect]
     Indication: PRODUCT USED FOR UNKNOWN INDICATION
     Dosage: 5MG AT 10:04 AND 5MG AT 16:58
     Route: 065
  6. CARDIZEM [Concomitant]
     Route: 065
  7. VICODIN [Concomitant]
     Dosage: EVERY 12 HOURS AS NEEDED
     Route: 065
  8. PRAVASTATIN [Concomitant]
     Route: 065
  9. NIASPAN [Concomitant]
     Route: 065
  10. TRILIPIX [Concomitant]
     Route: 065

REACTIONS (7)
  - Rectal haemorrhage [Unknown]
  - Anaemia [Unknown]
  - Dyspnoea [Unknown]
  - Urinary tract infection [Unknown]
  - Polyp [Unknown]
  - Gastrointestinal haemorrhage [Unknown]
  - Cough [Unknown]
